FAERS Safety Report 6867250-6 (Version None)
Quarter: 2010Q3

REPORT INFORMATION
  Report Type: 
  Country: None (occurrence: None)
  Receive Date: 20100722
  Receipt Date: 20100608
  Transmission Date: 20110219
  Serious: Yes (Other)
  Sender: FDA-Public Use
  Company Number: US-BAXTER-2010BH002567

PATIENT
  Age: 48 Year
  Sex: Female
  Weight: 72 kg

DRUGS (18)
  1. HEPARIN SODIUM [Suspect]
     Indication: VASCULAR OPERATION
     Route: 065
     Dates: start: 20080131, end: 20080131
  2. HEPARIN SODIUM [Suspect]
     Route: 065
     Dates: start: 20080131, end: 20080131
  3. HEPARIN SODIUM [Suspect]
     Route: 040
     Dates: start: 20080131, end: 20080131
  4. HEPARIN SODIUM [Suspect]
     Route: 042
     Dates: start: 20080130, end: 20080131
  5. TOPROL-XL [Concomitant]
     Indication: PRODUCT USED FOR UNKNOWN INDICATION
     Route: 065
  6. PANTOPRAZOLE [Concomitant]
     Indication: PRODUCT USED FOR UNKNOWN INDICATION
     Route: 065
  7. PROCARDIA [Concomitant]
     Indication: PRODUCT USED FOR UNKNOWN INDICATION
     Route: 065
  8. FLEXERIL [Concomitant]
     Indication: PRODUCT USED FOR UNKNOWN INDICATION
     Route: 065
  9. ACETYLSALICYLIC ACID [Concomitant]
     Indication: PRODUCT USED FOR UNKNOWN INDICATION
     Route: 065
  10. DARVOCET-N 100 [Concomitant]
     Indication: PRODUCT USED FOR UNKNOWN INDICATION
     Route: 065
  11. IBUPROFEN [Concomitant]
     Indication: PRODUCT USED FOR UNKNOWN INDICATION
     Route: 065
  12. HYDROMORPHONE HYDROCHLORIDE [Concomitant]
     Indication: PRODUCT USED FOR UNKNOWN INDICATION
     Route: 065
  13. MAGNESIUM SULFATE [Concomitant]
     Indication: PRODUCT USED FOR UNKNOWN INDICATION
     Route: 065
  14. POTASSIUM CHLORIDE [Concomitant]
     Indication: PRODUCT USED FOR UNKNOWN INDICATION
     Route: 065
  15. ACETAMINOPHEN AND HYDROCODONE BITARTRATE [Concomitant]
     Indication: PRODUCT USED FOR UNKNOWN INDICATION
     Route: 065
  16. HYDROMORPHONE HYDROCHLORIDE [Concomitant]
     Route: 065
  17. ONDANSETRON HYDROCHLORIDE [Concomitant]
     Indication: PRODUCT USED FOR UNKNOWN INDICATION
     Route: 065
  18. SODIUM CHLORIDE [Concomitant]
     Indication: PRODUCT USED FOR UNKNOWN INDICATION
     Route: 065

REACTIONS (35)
  - ABDOMINAL PAIN [None]
  - ACUTE RESPIRATORY DISTRESS SYNDROME [None]
  - AMNESIA [None]
  - ANAEMIA [None]
  - BLOOD FIBRINOGEN DECREASED [None]
  - CARDIAC FAILURE CONGESTIVE [None]
  - CEREBROVASCULAR ACCIDENT [None]
  - COAGULOPATHY [None]
  - CYANOSIS [None]
  - DIARRHOEA [None]
  - DYSPHAGIA [None]
  - DYSPNOEA [None]
  - FEELING COLD [None]
  - FLUID OVERLOAD [None]
  - GANGRENE [None]
  - HEPARIN-INDUCED THROMBOCYTOPENIA [None]
  - HYPERGLYCAEMIA [None]
  - HYPERVOLAEMIA [None]
  - HYPOKINESIA [None]
  - HYPOXIA [None]
  - ISCHAEMIA [None]
  - LIVEDO RETICULARIS [None]
  - LUNG INFILTRATION [None]
  - MENTAL STATUS CHANGES [None]
  - MUSCULAR WEAKNESS [None]
  - NECROSIS [None]
  - PAIN [None]
  - PULMONARY OEDEMA [None]
  - PUPILS UNEQUAL [None]
  - PYREXIA [None]
  - RESPIRATORY FAILURE [None]
  - SKIN DISCOLOURATION [None]
  - SUBCLAVIAN ARTERY STENOSIS [None]
  - TACHYCARDIA [None]
  - VENOUS THROMBOSIS LIMB [None]
